FAERS Safety Report 4278693-1 (Version None)
Quarter: 2004Q1

REPORT INFORMATION
  Report Type: 
  Country: None (occurrence: None)
  Receive Date: 20040107
  Receipt Date: 20031117
  Transmission Date: 20041129
  Serious: Yes (Hospitalization)
  Sender: FDA-Public Use
  Company Number: 233972K03USA

PATIENT
  Age: 47 Year
  Sex: Female
  Weight: 78 kg

DRUGS (5)
  1. REBIF [Suspect]
     Indication: MULTIPLE SCLEROSIS
     Dosage: 22 MCG, 3 IN 1 WEEKS, SUBCUTANEOUS
     Route: 058
     Dates: start: 20030702, end: 20031002
  2. GABAPENTIN [Concomitant]
  3. NADOLOL [Concomitant]
  4. CLONAZEPAM [Concomitant]
  5. METHOCARBAMOL [Concomitant]

REACTIONS (1)
  - MULTIPLE SCLEROSIS [None]
